FAERS Safety Report 24818841 (Version 2)
Quarter: 2025Q1

REPORT INFORMATION
  Report Type: Spontaneous
  Country: US (occurrence: US)
  Receive Date: 20250108
  Receipt Date: 20250305
  Transmission Date: 20250408
  Serious: Yes (Hospitalization)
  Sender: CSL BEHRING
  Company Number: US-BEH-2025191004

PATIENT
  Age: 40 Year
  Sex: Male
  Weight: 106.3 kg

DRUGS (16)
  1. MIRCERA [Suspect]
     Active Substance: METHOXY POLYETHYLENE GLYCOL-EPOETIN BETA
     Indication: Nephrogenic anaemia
     Route: 040
     Dates: start: 20241226, end: 20241226
  2. ROSUVASTATIN [Concomitant]
     Active Substance: ROSUVASTATIN
     Route: 048
  3. HYDRALAZINE [Concomitant]
     Active Substance: HYDRALAZINE HYDROCHLORIDE
     Dosage: 50 MG, TID
  4. AMLODIPINE [Concomitant]
     Active Substance: AMLODIPINE BESYLATE
  5. CARVEDILOL [Concomitant]
     Active Substance: CARVEDILOL
     Dosage: 25 MG, BID
  6. DOXAZOSIN [Concomitant]
     Active Substance: DOXAZOSIN MESYLATE
  7. ALLOPURINOL [Concomitant]
     Active Substance: ALLOPURINOL
     Indication: Gout
     Route: 048
     Dates: start: 20241227
  8. NORVASC [Concomitant]
     Active Substance: AMLODIPINE BESYLATE
     Indication: Essential hypertension
     Route: 048
     Dates: start: 20241227
  9. BASAGLAR KWIKPEN [Concomitant]
     Active Substance: INSULIN GLARGINE
     Indication: Type 2 diabetes mellitus
     Route: 062
  10. BUMEX [Concomitant]
     Active Substance: BUMETANIDE
     Indication: Essential hypertension
     Dosage: 8 MG, TID ON NON DIALYSIS DAYS
  11. ROCALTROL [Concomitant]
     Active Substance: CALCITRIOL
     Indication: Essential hypertension
     Dosage: 0.25 ?G EVERY OTHER DAY
     Route: 048
     Dates: start: 20241226
  12. COREG [Concomitant]
     Active Substance: CARVEDILOL
     Indication: Hypertensive emergency
     Dosage: 25 MG, TID WITH MEALS
     Route: 048
     Dates: start: 20241227
  13. CARDURA [Concomitant]
     Active Substance: DOXAZOSIN MESYLATE
     Indication: Essential hypertension
     Dosage: 2 MG, QOD (NIGHTLY)
     Route: 048
     Dates: start: 20241226
  14. APRESOLINE HYDROCHLORIDE [Concomitant]
     Active Substance: HYDRALAZINE HYDROCHLORIDE
     Indication: Essential hypertension
     Dosage: 50 MG, TID
     Route: 048
     Dates: start: 20241227
  15. CRESTOR [Concomitant]
     Active Substance: ROSUVASTATIN CALCIUM
     Indication: Essential hypertension
     Route: 048
     Dates: start: 20241226
  16. RENVELA [Concomitant]
     Active Substance: SEVELAMER CARBONATE
     Indication: Chronic kidney disease
     Dosage: 1600 MG, TID WITH MEAL
     Route: 048
     Dates: start: 20241227

REACTIONS (5)
  - Drug hypersensitivity [Recovered/Resolved]
  - Unresponsive to stimuli [Recovered/Resolved]
  - Pulse absent [Recovered/Resolved]
  - Syncope [Recovered/Resolved]
  - Cardio-respiratory arrest [Recovered/Resolved]

NARRATIVE: CASE EVENT DATE: 20241226
